FAERS Safety Report 12338961 (Version 1)
Quarter: 2016Q2

REPORT INFORMATION
  Report Type: Spontaneous
  Country: US (occurrence: US)
  Receive Date: 20160505
  Receipt Date: 20160505
  Transmission Date: 20160815
  Serious: No
  Sender: FDA-Public Use
  Company Number: US-PFIZER INC-2016211068

PATIENT
  Age: 43 Year
  Sex: Male
  Weight: 81.65 kg

DRUGS (1)
  1. VIAGRA [Suspect]
     Active Substance: SILDENAFIL CITRATE
     Indication: ERECTILE DYSFUNCTION
     Dosage: 100MG TABLETS EVERY TWO DAYS BY MOUTH BEFORE INTERCOURSE
     Route: 048
     Dates: start: 201511

REACTIONS (6)
  - Penis disorder [Not Recovered/Not Resolved]
  - Ejaculation disorder [Not Recovered/Not Resolved]
  - Penile curvature [Not Recovered/Not Resolved]
  - Semen discolouration [Not Recovered/Not Resolved]
  - Drug effect incomplete [Unknown]
  - Testicular disorder [Not Recovered/Not Resolved]

NARRATIVE: CASE EVENT DATE: 201602
